FAERS Safety Report 9011745 (Version 1)
Quarter: 2012Q4

REPORT INFORMATION
  Report Type: Spontaneous
  Country: US (occurrence: None)
  Receive Date: 20121228
  Receipt Date: 20121228
  Transmission Date: 20130627
  Serious: Yes (Other)
  Sender: FDA-Public Use
  Company Number: 2012-01848

PATIENT
  Sex: Female

DRUGS (1)
  1. LISINOPRIL (LISINOPRIL) [Suspect]
     Indication: DRUG USE FOR UNKNOWN INDICATION

REACTIONS (6)
  - Blindness transient [None]
  - Dry mouth [None]
  - Cough [None]
  - Eye pain [None]
  - Eye irritation [None]
  - Dysuria [None]
